FAERS Safety Report 15169399 (Version 3)
Quarter: 2018Q3

REPORT INFORMATION
  Report Type: Report from Study
  Country: US (occurrence: US)
  Receive Date: 20180720
  Receipt Date: 20180802
  Transmission Date: 20181010
  Serious: Yes (Death, Hospitalization, Other)
  Sender: FDA-Public Use
  Company Number: US-GILEAD-2018-0350689

PATIENT
  Age: 77 Year
  Sex: Male

DRUGS (2)
  1. AMBRISENTAN [Suspect]
     Active Substance: AMBRISENTAN
     Indication: PRODUCT USED FOR UNKNOWN INDICATION
     Dosage: 5 MG, QD
     Route: 065
     Dates: start: 20180427
  2. AMBRISENTAN [Suspect]
     Active Substance: AMBRISENTAN
     Dosage: 10 MG, UNK
     Route: 065
     Dates: start: 20180428

REACTIONS (5)
  - Wheelchair user [Not Recovered/Not Resolved]
  - Speech disorder [Not Recovered/Not Resolved]
  - Myocardial infarction [Unknown]
  - Cerebrovascular accident [Unknown]
  - Death [Fatal]
